FAERS Safety Report 15939957 (Version 4)
Quarter: 2020Q1

REPORT INFORMATION
  Report Type: Spontaneous
  Country: US (occurrence: US)
  Receive Date: 20190208
  Receipt Date: 20200305
  Transmission Date: 20200409
  Serious: Yes (Other)
  Sender: FDA-Public Use
  Company Number: US-ASTRAZENECA-2019SE11152

PATIENT
  Sex: Female

DRUGS (39)
  1. ALLOPURINOL. [Concomitant]
     Active Substance: ALLOPURINOL
  2. CYANOCOBALAMIN. [Concomitant]
     Active Substance: CYANOCOBALAMIN
  3. NAPROXEN. [Concomitant]
     Active Substance: NAPROXEN
     Indication: PAIN
     Dates: start: 2013
  4. TORSEMIDE. [Concomitant]
     Active Substance: TORSEMIDE
     Indication: FLUID RETENTION
     Dates: start: 2013
  5. SPIRONOLACTONE. [Concomitant]
     Active Substance: SPIRONOLACTONE
     Indication: HYPERTENSION
     Dates: start: 2013
  6. SULFAMETHOXAZOLE/TRIMETHOPRIM [Concomitant]
     Active Substance: SULFAMETHOXAZOLE\TRIMETHOPRIM
     Indication: INFECTION
     Dates: start: 2016
  7. PRILOSEC [Suspect]
     Active Substance: OMEPRAZOLE MAGNESIUM
     Dosage: FOR MULTIPLE AND VARIOUS YEARS
     Route: 048
  8. DEXILANT [Suspect]
     Active Substance: DEXLANSOPRAZOLE
     Dosage: FOR MULTIPLE AND VARIOUS YEARS
     Route: 065
  9. PROTONIX [Suspect]
     Active Substance: PANTOPRAZOLE SODIUM
     Indication: GASTROOESOPHAGEAL REFLUX DISEASE
     Route: 065
  10. ALLOPURINOL. [Concomitant]
     Active Substance: ALLOPURINOL
     Indication: GOUT
     Dates: start: 2015
  11. CARAFATE [Concomitant]
     Active Substance: SUCRALFATE
  12. NORCO [Concomitant]
     Active Substance: ACETAMINOPHEN\HYDROCODONE BITARTRATE
  13. ZOFRAN [Concomitant]
     Active Substance: ONDANSETRON HYDROCHLORIDE
  14. TRAMADOL. [Concomitant]
     Active Substance: TRAMADOL
     Indication: PAIN
     Dates: start: 2013
  15. PROTONIX [Suspect]
     Active Substance: PANTOPRAZOLE SODIUM
     Indication: GASTROOESOPHAGEAL REFLUX DISEASE
     Dosage: GENERIC
     Route: 065
     Dates: start: 2017
  16. AMLODIPINE [Concomitant]
     Active Substance: AMLODIPINE BESYLATE
  17. FOLIC ACID. [Concomitant]
     Active Substance: FOLIC ACID
  18. AZITHROMYCIN ANHYDROUS. [Concomitant]
     Active Substance: AZITHROMYCIN ANHYDROUS
     Indication: INFECTION
     Dates: start: 2013
  19. PREVACID [Suspect]
     Active Substance: LANSOPRAZOLE
     Dosage: FOR MULTIPLE AND VARIOUS YEARS
     Route: 065
  20. PREVACID 24 HR [Suspect]
     Active Substance: LANSOPRAZOLE
     Dosage: FOR MULTIPLE AND VARIOUS YEARS
     Route: 065
  21. CARVEDILOL. [Concomitant]
     Active Substance: CARVEDILOL
  22. LEVOCETIRIZINE [Concomitant]
     Active Substance: LEVOCETIRIZINE
  23. CLOPIDOGREL [Concomitant]
     Active Substance: CLOPIDOGREL BISULFATE
     Indication: CARDIAC DISORDER
     Dates: start: 2013, end: 2016
  24. RANITIDINE. [Concomitant]
     Active Substance: RANITIDINE
  25. ZANTAC [Concomitant]
     Active Substance: RANITIDINE HYDROCHLORIDE
     Dosage: 150
  26. NEXIUM 24HR [Suspect]
     Active Substance: ESOMEPRAZOLE MAGNESIUM
     Dosage: FOR MULTIPLE AND VARIOUS YEARS
     Route: 048
  27. PRILOSEC OTC [Suspect]
     Active Substance: OMEPRAZOLE MAGNESIUM
     Dosage: FOR MULTIPLE AND VARIOUS YEARS
     Route: 048
  28. PROTONIX [Suspect]
     Active Substance: PANTOPRAZOLE SODIUM
     Indication: GASTROOESOPHAGEAL REFLUX DISEASE
     Dosage: FOR MULTIPLE AND VARIOUS YEARS
     Route: 065
  29. LIPITOR [Concomitant]
     Active Substance: ATORVASTATIN CALCIUM
  30. NEXIUM [Suspect]
     Active Substance: ESOMEPRAZOLE MAGNESIUM
     Indication: GASTROOESOPHAGEAL REFLUX DISEASE
     Dosage: FOR MULTIPLE AND VARIOUS YEARS
     Route: 048
  31. NEXIUM [Suspect]
     Active Substance: ESOMEPRAZOLE MAGNESIUM
     Indication: GASTROOESOPHAGEAL REFLUX DISEASE
     Route: 048
  32. NEXIUM [Suspect]
     Active Substance: ESOMEPRAZOLE MAGNESIUM
     Indication: GASTROOESOPHAGEAL REFLUX DISEASE
     Route: 048
     Dates: start: 2005, end: 2016
  33. ASPIRIN. [Concomitant]
     Active Substance: ASPIRIN
  34. FUROSEMIDE. [Concomitant]
     Active Substance: FUROSEMIDE
  35. PLAVIX [Concomitant]
     Active Substance: CLOPIDOGREL BISULFATE
  36. ROPINIROLE. [Concomitant]
     Active Substance: ROPINIROLE
  37. LEVOFLOXACIN. [Concomitant]
     Active Substance: LEVOFLOXACIN
     Indication: INFECTION
     Dates: start: 2014
  38. TYLENOL [Concomitant]
     Active Substance: ACETAMINOPHEN
     Indication: PAIN
  39. ZANTAC [Concomitant]
     Active Substance: RANITIDINE HYDROCHLORIDE
     Dosage: GENERIC RANITIDINE

REACTIONS (6)
  - Nephrogenic anaemia [Unknown]
  - Nephropathy [Not Recovered/Not Resolved]
  - Renal injury [Unknown]
  - Rebound acid hypersecretion [Unknown]
  - Chronic kidney disease [Unknown]
  - Renal failure [Unknown]
